FAERS Safety Report 22382894 (Version 6)
Quarter: 2025Q3

REPORT INFORMATION
  Report Type: Spontaneous
  Country: CA (occurrence: CA)
  Receive Date: 20230530
  Receipt Date: 20250703
  Transmission Date: 20251021
  Serious: Yes (Other)
  Sender: PFIZER
  Company Number: CA-PFIZER INC-202201232579

PATIENT
  Age: 57 Year
  Sex: Female

DRUGS (3)
  1. ABRILADA [Suspect]
     Active Substance: ADALIMUMAB-AFZB
     Indication: Crohn^s disease
     Route: 058
     Dates: start: 20220517, end: 2022
  2. ABRILADA [Suspect]
     Active Substance: ADALIMUMAB-AFZB
     Dosage: 40 MG, WEEKLY
     Route: 058
     Dates: start: 2022
  3. ABRILADA [Suspect]
     Active Substance: ADALIMUMAB-AFZB
     Dosage: 40 MG, WEEKLY
     Route: 058
     Dates: start: 20230201

REACTIONS (17)
  - Lung disorder [Unknown]
  - Poor quality sleep [Unknown]
  - Asthenia [Unknown]
  - Dyspnoea [Unknown]
  - Wheezing [Unknown]
  - Injection site erythema [Unknown]
  - Nasopharyngitis [Not Recovered/Not Resolved]
  - Cough [Not Recovered/Not Resolved]
  - Illness [Unknown]
  - Off label use [Unknown]
  - Incorrect dose administered [Unknown]
  - Accidental exposure to product [Unknown]
  - Exposure via skin contact [Unknown]
  - Device leakage [Unknown]
  - Device malfunction [Unknown]
  - Arthralgia [Unknown]
  - Treatment failure [Unknown]

NARRATIVE: CASE EVENT DATE: 20220101
